FAERS Safety Report 17224338 (Version 1)
Quarter: 2020Q1

REPORT INFORMATION
  Report Type: Spontaneous
  Country: US (occurrence: US)
  Receive Date: 20200102
  Receipt Date: 20200102
  Transmission Date: 20200409
  Serious: Yes (Hospitalization)
  Sender: FDA-Public Use
  Company Number: NVSC2019US083021

PATIENT
  Age: 2 Year
  Sex: Female

DRUGS (1)
  1. GLEEVEC [Suspect]
     Active Substance: IMATINIB MESYLATE
     Indication: PULMONARY VEIN STENOSIS
     Dosage: UNK
     Route: 065

REACTIONS (5)
  - Pulmonary hypertensive crisis [Unknown]
  - Pulmonary vascular disorder [Unknown]
  - Condition aggravated [Unknown]
  - Respiratory tract infection [Unknown]
  - Product use in unapproved indication [Unknown]
